FAERS Safety Report 4300050-X (Version None)
Quarter: 2004Q1

REPORT INFORMATION
  Report Type: 
  Country: None (occurrence: None)
  Receive Date: 20040220
  Receipt Date: 20030812
  Transmission Date: 20041129
  Serious: Yes (Death)
  Sender: FDA-Public Use
  Company Number: PHHO2003CA10244

PATIENT
  Age: 25 Year
  Sex: Male

DRUGS (10)
  1. CLOZARIL [Suspect]
     Indication: SCHIZOPHRENIA
     Dosage: 700 MG QD
     Route: 048
     Dates: start: 19990316
  2. CLOZARIL [Suspect]
     Dosage: 900 MG, QD
     Route: 048
  3. IMIPRAMINE [Concomitant]
     Dosage: 25 MG
  4. IMIPRAMINE [Concomitant]
     Dosage: 300 MG, QD
     Dates: start: 20020401
  5. LOXAPINE [Concomitant]
     Dosage: 15 MG, QD
     Dates: start: 20020401
  6. BUSCOPAN [Concomitant]
     Dosage: 20 MG, QD
     Dates: start: 20020401
  7. VALPROIC ACID [Concomitant]
     Dosage: 1250 MG, QD
     Dates: start: 20020401
  8. CELEXA [Concomitant]
     Indication: PANIC DISORDER
     Dosage: 20 MG
  9. CELEXA [Concomitant]
     Dosage: 40 MG, QD
     Dates: start: 20020401
  10. ATIVAN [Concomitant]
     Dosage: 2.5 MG, QD
     Dates: start: 20020401

REACTIONS (12)
  - CHEST PAIN [None]
  - CIRCULATORY COLLAPSE [None]
  - DEPRESSION SUICIDAL [None]
  - DRUG LEVEL INCREASED [None]
  - DRUG TOXICITY [None]
  - ENURESIS [None]
  - GRAND MAL CONVULSION [None]
  - PANIC ATTACK [None]
  - SELF-MEDICATION [None]
  - SOMNOLENCE [None]
  - SUDDEN DEATH [None]
  - THERAPEUTIC AGENT TOXICITY [None]
